FAERS Safety Report 12764183 (Version 2)
Quarter: 2016Q4

REPORT INFORMATION
  Report Type: Spontaneous
  Country: US (occurrence: US)
  Receive Date: 20160920
  Receipt Date: 20161130
  Transmission Date: 20170207
  Serious: No
  Sender: FDA-Public Use
  Company Number: US-ELI_LILLY_AND_COMPANY-US201609005749

PATIENT
  Sex: Female
  Weight: 96.6 kg

DRUGS (4)
  1. HUMULIN N [Suspect]
     Active Substance: INSULIN HUMAN
     Dosage: 26 U, QD
     Route: 065
     Dates: start: 20160914
  2. HUMULIN N [Suspect]
     Active Substance: INSULIN HUMAN
     Indication: PRODUCT USED FOR UNKNOWN INDICATION
     Dosage: 26 U, QD
     Route: 065
     Dates: start: 20160810, end: 20160824
  3. HUMULIN N [Suspect]
     Active Substance: INSULIN HUMAN
     Dosage: 40 U, QD
     Route: 065
     Dates: start: 20160810, end: 20160824
  4. HUMULIN N [Suspect]
     Active Substance: INSULIN HUMAN
     Dosage: 40 U, QD
     Route: 065
     Dates: start: 20160914

REACTIONS (3)
  - Exposure during pregnancy [Unknown]
  - Injection site urticaria [Recovered/Resolved]
  - Injection site rash [Unknown]
